FAERS Safety Report 15331275 (Version 1)
Quarter: 2018Q3

REPORT INFORMATION
  Report Type: Spontaneous
  Country: US (occurrence: US)
  Receive Date: 20180829
  Receipt Date: 20180829
  Transmission Date: 20181010
  Serious: Yes (Death, Other)
  Sender: FDA-Public Use
  Company Number: US-009507513-1808USA012276

PATIENT
  Sex: Female

DRUGS (1)
  1. JANUVIA [Suspect]
     Active Substance: SITAGLIPTIN PHOSPHATE
     Indication: PRODUCT USED FOR UNKNOWN INDICATION
     Dosage: UNK
     Route: 048
     Dates: start: 20110127, end: 20170629

REACTIONS (2)
  - Death [Fatal]
  - Pancreatic carcinoma [Unknown]

NARRATIVE: CASE EVENT DATE: 20170501
